FAERS Safety Report 4894020-0 (Version None)
Quarter: 2006Q1

REPORT INFORMATION
  Report Type: 
  Country: None (occurrence: None)
  Receive Date: 20060127
  Receipt Date: 20050504
  Transmission Date: 20060701
  Serious: No
  Sender: FDA-Public Use
  Company Number: US-GLAXOSMITHKLINE-A0557249A

PATIENT
  Age: 61 Year
  Sex: Female

DRUGS (10)
  1. BUPROPION HYDROCHLORIDE [Suspect]
     Indication: DEPRESSION
     Dosage: 100MG PER DAY
     Route: 048
     Dates: start: 20040401
  2. ALBUTEROL SULFATE AUTOHALER [Concomitant]
  3. INTAL [Concomitant]
  4. LEVOXYL [Concomitant]
  5. VIT E [Concomitant]
  6. VIT. C [Concomitant]
  7. CALCIUM GLUCONATE [Concomitant]
  8. MAGNESIUM [Concomitant]
  9. POTASSIUM [Concomitant]
  10. M.V.I. [Concomitant]

REACTIONS (1)
  - MUSCLE SPASMS [None]
